FAERS Safety Report 23385384 (Version 1)
Quarter: 2024Q1

REPORT INFORMATION
  Report Type: Spontaneous
  Country: IT (occurrence: IT)
  Receive Date: 20240110
  Receipt Date: 20240110
  Transmission Date: 20240409
  Serious: Yes (Hospitalization, Other)
  Sender: FDA-Public Use
  Company Number: IT-MINISAL02-958580

PATIENT
  Age: 59 Year
  Sex: Male

DRUGS (6)
  1. METFORMIN HYDROCHLORIDE [Suspect]
     Active Substance: METFORMIN HYDROCHLORIDE
     Indication: Product used for unknown indication
     Dosage: 4000 MILLIGRAM (1000 MG)
     Route: 048
     Dates: start: 20231006, end: 20231006
  2. METFORMIN HYDROCHLORIDE [Suspect]
     Active Substance: METFORMIN HYDROCHLORIDE
     Dosage: 4000 MILLIGRAM (1000 MG)
     Route: 048
     Dates: start: 20231009, end: 20231009
  3. ASPIRIN [Suspect]
     Active Substance: ASPIRIN
     Indication: Product used for unknown indication
     Dosage: 400 MILLIGRAM (100 MG)
     Route: 048
     Dates: start: 20231006, end: 20231006
  4. ASPIRIN [Suspect]
     Active Substance: ASPIRIN
     Dosage: 400 MILLIGRAM (100 MG)
     Route: 048
     Dates: start: 20231009, end: 20231009
  5. EZETIMIBE\ROSUVASTATIN CALCIUM [Suspect]
     Active Substance: EZETIMIBE\ROSUVASTATIN CALCIUM
     Indication: Product used for unknown indication
     Dosage: 150 MILLIGRAM (5 MG/10 MG)
     Route: 048
     Dates: start: 20231006, end: 20231006
  6. EZETIMIBE\ROSUVASTATIN CALCIUM [Suspect]
     Active Substance: EZETIMIBE\ROSUVASTATIN CALCIUM
     Dosage: 150 MILLIGRAM (5 MG/10 MG)
     Route: 048
     Dates: start: 20231009, end: 20231009

REACTIONS (3)
  - Drug abuse [Recovered/Resolved]
  - Dyspnoea [Recovered/Resolved]
  - Toxicity to various agents [Recovered/Resolved]

NARRATIVE: CASE EVENT DATE: 20231006
